FAERS Safety Report 26047709 (Version 1)
Quarter: 2025Q4

REPORT INFORMATION
  Report Type: Spontaneous
  Country: US (occurrence: US)
  Receive Date: 20251114
  Receipt Date: 20251114
  Transmission Date: 20260117
  Serious: No
  Sender: PFIZER
  Company Number: US-PFIZER INC-PV202500133225

PATIENT
  Sex: Female

DRUGS (2)
  1. XELJANZ XR [Suspect]
     Active Substance: TOFACITINIB CITRATE
     Indication: Rheumatoid arthritis
     Dosage: 11 MG, 1X/DAY
     Route: 048
     Dates: start: 202508, end: 20251002
  2. RINVOQ [Concomitant]
     Active Substance: UPADACITINIB
     Dosage: UNK, ER

REACTIONS (2)
  - Drug ineffective [Unknown]
  - Paraesthesia [Unknown]
